FAERS Safety Report 4761470-2 (Version None)
Quarter: 2005Q3

REPORT INFORMATION
  Report Type: 
  Country: None (occurrence: None)
  Receive Date: 20050902
  Receipt Date: 20050902
  Transmission Date: 20060218
  Serious: Yes (Hospitalization, Other)
  Sender: FDA-Public Use
  Company Number: None

PATIENT
  Sex: Male
  Weight: 85 kg

DRUGS (2)
  1. CYTARABINE [Suspect]
     Indication: ACUTE MYELOID LEUKAEMIA
     Dosage: SEE IMAGE
     Route: 042
     Dates: start: 20050805, end: 20050811
  2. GCSF [Suspect]
     Dosage: SEE IMAGE
     Dates: start: 20050805

REACTIONS (4)
  - FUNGAL INFECTION [None]
  - INFECTED INSECT BITE [None]
  - NEUTROPENIA [None]
  - PYREXIA [None]
